FAERS Safety Report 7434985-6 (Version None)
Quarter: 2011Q2

REPORT INFORMATION
  Report Type: 
  Country: None (occurrence: None)
  Receive Date: 20110415
  Receipt Date: 20110406
  Transmission Date: 20111010
  Serious: Yes (Other)
  Sender: FDA-Public Use
  Company Number: 2011S1000089

PATIENT
  Age: 3 Day
  Sex: Male
  Weight: 1.27 kg

DRUGS (17)
  1. FUROSEMIDE [Concomitant]
  2. HEPARIN [Concomitant]
  3. FERROUS SULFATE TAB [Concomitant]
  4. GENTAMICIN [Concomitant]
  5. INOMAX [Suspect]
  6. INOMAX [Suspect]
     Indication: PROPHYLAXIS
     Dosage: 20 PPM; CONT; INH, 10 PPM; CONT; INH, 5 PPM; CONT; INH
     Route: 055
     Dates: start: 20110212, end: 20110218
  7. INOMAX [Suspect]
     Indication: BRONCHOPULMONARY DYSPLASIA
     Dosage: 20 PPM; CONT; INH, 10 PPM; CONT; INH, 5 PPM; CONT; INH
     Route: 055
     Dates: start: 20110212, end: 20110218
  8. INOMAX [Suspect]
     Indication: PROPHYLAXIS
     Dosage: 20 PPM; CONT; INH, 10 PPM; CONT; INH, 5 PPM; CONT; INH
     Route: 055
     Dates: start: 20110209, end: 20110212
  9. INOMAX [Suspect]
     Indication: BRONCHOPULMONARY DYSPLASIA
     Dosage: 20 PPM; CONT; INH, 10 PPM; CONT; INH, 5 PPM; CONT; INH
     Route: 055
     Dates: start: 20110209, end: 20110212
  10. INOMAX [Suspect]
     Indication: PROPHYLAXIS
     Dosage: 20 PPM; CONT; INH, 10 PPM; CONT; INH, 5 PPM; CONT; INH
     Route: 055
     Dates: start: 20110218, end: 20110305
  11. INOMAX [Suspect]
     Indication: BRONCHOPULMONARY DYSPLASIA
     Dosage: 20 PPM; CONT; INH, 10 PPM; CONT; INH, 5 PPM; CONT; INH
     Route: 055
     Dates: start: 20110218, end: 20110305
  12. ACTIVASE [Concomitant]
  13. MULTI-VITAMINS [Concomitant]
  14. CALCIUM GLUBIONATE [Concomitant]
  15. CAFFEINE CITRATE [Concomitant]
  16. OXACILLIN [Concomitant]
  17. PIPERACILLIN [Concomitant]

REACTIONS (4)
  - CONDITION AGGRAVATED [None]
  - KLEBSIELLA TEST POSITIVE [None]
  - STAPHYLOCOCCUS TEST POSITIVE [None]
  - PATENT DUCTUS ARTERIOSUS [None]
